FAERS Safety Report 8517880-0 (Version None)
Quarter: 2012Q3

REPORT INFORMATION
  Report Type: 
  Country: None (occurrence: None)
  Receive Date: 20120718
  Receipt Date: 20110628
  Transmission Date: 20120928
  Serious: No
  Sender: FDA-Public Use
  Company Number: US-BRISTOL-MYERS SQUIBB COMPANY-15860836

PATIENT
  Age: 83 Year
  Sex: Male

DRUGS (4)
  1. ERBITUX [Concomitant]
     Indication: SKIN CANCER
     Dosage: 19 TREATMENTS OF RADIATION,WEEKLY INFUSIONS
  2. CARBATROL [Concomitant]
     Indication: CONVULSION
     Dosage: 1 DF : 2 CAPS,200MG
  3. WARFARIN SODIUM [Suspect]
     Indication: HEART RATE IRREGULAR
     Dosage: FOR YEARS
  4. ATENOLOL [Concomitant]

REACTIONS (1)
  - INTERNATIONAL NORMALISED RATIO INCREASED [None]
